FAERS Safety Report 15763745 (Version 1)
Quarter: 2018Q4

REPORT INFORMATION
  Report Type: Spontaneous
  Country: GB (occurrence: GB)
  Receive Date: 20181227
  Receipt Date: 20181227
  Transmission Date: 20190205
  Serious: Yes (Other)
  Sender: FDA-Public Use
  Company Number: GB-TEVA-2018-GB-991066

PATIENT
  Age: 64 Year
  Sex: Female

DRUGS (1)
  1. FENTANYL. [Suspect]
     Active Substance: FENTANYL
     Dosage: 200-400MCG.
     Route: 065
     Dates: start: 20180423

REACTIONS (6)
  - Lethargy [Unknown]
  - Documented hypersensitivity to administered product [Unknown]
  - Confusional state [Unknown]
  - Tachycardia [Unknown]
  - Chest pain [Recovered/Resolved]
  - Oxygen saturation decreased [Unknown]

NARRATIVE: CASE EVENT DATE: 20180424
